FAERS Safety Report 8220782-0 (Version None)
Quarter: 2012Q1

REPORT INFORMATION
  Report Type: 
  Country: None (occurrence: None)
  Receive Date: 20120319
  Receipt Date: 20120316
  Transmission Date: 20120608
  Serious: Yes (Life-Threatening, Hospitalization)
  Sender: FDA-Public Use
  Company Number: DE-B.I. PHARMACEUTICALS,INC./RIDGEFIELD-2011-DE-06359DE

PATIENT
  Sex: Female
  Weight: 80 kg

DRUGS (6)
  1. METOPROLOL SUCCINATE [Concomitant]
  2. COLECAL 03 [Concomitant]
  3. TORSEMIDE [Concomitant]
  4. ESCITALOPRAM [Concomitant]
  5. PRADAXA [Suspect]
     Indication: ATRIAL FIBRILLATION
     Dosage: 2 ANZ
     Dates: start: 20111027, end: 20111028
  6. SIMVASTATIN [Concomitant]

REACTIONS (4)
  - HAEMORRHAGE INTRACRANIAL [None]
  - SUBCUTANEOUS HAEMATOMA [None]
  - BLOOD UREA [None]
  - CEREBRAL HAEMORRHAGE [None]
